FAERS Safety Report 7584837-6 (Version None)
Quarter: 2011Q2

REPORT INFORMATION
  Report Type: 
  Country: None (occurrence: None)
  Receive Date: 20110630
  Receipt Date: 20110628
  Transmission Date: 20111010
  Serious: Yes (Other)
  Sender: FDA-Public Use
  Company Number: PHHY2011NL57393

PATIENT
  Sex: Male

DRUGS (8)
  1. SANDOSTATIN LAR [Suspect]
     Dosage: 30 MG X1
     Dates: start: 20110503
  2. OXAZEPAM [Concomitant]
     Dosage: 20 MG X 3
  3. OXYCODONE HCL [Concomitant]
     Dosage: 10 MG X2-3
  4. DOMPERIDONE [Concomitant]
     Dosage: 10 MG X4
  5. FENTANYL [Concomitant]
     Dosage: 50 UG X1
  6. SANDOSTATIN LAR [Suspect]
     Indication: PANCREATIC NEUROENDOCRINE TUMOUR
     Dosage: 30 MG X1
     Dates: start: 20110404
  7. SANDOSTATIN LAR [Suspect]
     Dosage: 30 MG X1
     Dates: start: 20110531
  8. FRAXODI [Concomitant]
     Dosage: 0.8 UNK, QD

REACTIONS (4)
  - ABDOMINAL PAIN [None]
  - VOMITING [None]
  - NAUSEA [None]
  - PAIN [None]
